FAERS Safety Report 11827877 (Version 1)
Quarter: 2015Q4

REPORT INFORMATION
  Report Type: Spontaneous
  Country: US (occurrence: US)
  Receive Date: 20151211
  Receipt Date: 20151211
  Transmission Date: 20160305
  Serious: No
  Sender: FDA-Public Use
  Company Number: US-BAUSCH-BL-2015-001991

PATIENT
  Age: 30 Year
  Sex: Male

DRUGS (1)
  1. XENAZINE [Suspect]
     Active Substance: TETRABENAZINE
     Indication: TOURETTE^S DISORDER
     Dates: start: 20150105

REACTIONS (2)
  - Depression [Unknown]
  - Off label use [Unknown]

NARRATIVE: CASE EVENT DATE: 20150105
